FAERS Safety Report 7797325-9 (Version None)
Quarter: 2011Q4

REPORT INFORMATION
  Report Type: 
  Country: None (occurrence: None)
  Receive Date: 20111005
  Receipt Date: 20110927
  Transmission Date: 20120403
  Serious: Yes (Hospitalization)
  Sender: FDA-Public Use
  Company Number: US-UCBSA-036320

PATIENT
  Age: 28 Year
  Sex: Male

DRUGS (5)
  1. ATENOLOL [Concomitant]
     Indication: HYPERTHYROIDISM
  2. PROPRANOLOL [Concomitant]
     Route: 048
  3. PREDNISOLONE [Suspect]
     Indication: HYPERTHYROIDISM
  4. PROPRANOLOL [Concomitant]
     Indication: HYPERTHYROIDISM
     Route: 048
  5. METHIMAZOLE [Concomitant]
     Indication: HYPERTHYROIDISM

REACTIONS (1)
  - THYROTOXIC PERIODIC PARALYSIS [None]
